FAERS Safety Report 14009723 (Version 2)
Quarter: 2017Q4

REPORT INFORMATION
  Report Type: Report from Study
  Country: None (occurrence: CO)
  Receive Date: 20170925
  Receipt Date: 20171014
  Transmission Date: 20180321
  Serious: Yes (Other)
  Sender: FDA-Public Use
  Company Number: CO-ABBVIE-17K-036-2111129-00

PATIENT
  Sex: Female
  Weight: 70 kg

DRUGS (1)
  1. HUMIRA [Suspect]
     Active Substance: ADALIMUMAB
     Indication: ANKYLOSING SPONDYLITIS
     Route: 058
     Dates: start: 20100913, end: 20170905

REACTIONS (6)
  - Eye disorder [Unknown]
  - Eye operation complication [Unknown]
  - Corneal deposits [Recovering/Resolving]
  - Cataract [Recovering/Resolving]
  - Vision blurred [Recovering/Resolving]
  - Cataract operation complication [Recovering/Resolving]

NARRATIVE: CASE EVENT DATE: 2014
